FAERS Safety Report 8934976 (Version 1)
Quarter: 2012Q4

REPORT INFORMATION
  Report Type: Report from Study
  Country: US (occurrence: FR)
  Receive Date: 20121129
  Receipt Date: 20121129
  Transmission Date: 20130627
  Serious: Yes (Other)
  Sender: FDA-Public Use
  Company Number: US-GILEAD-2011-0048233

PATIENT
  Age: 25 Year
  Sex: Female

DRUGS (5)
  1. EMTRICITABINE/TENOFOVIR DISOPROXIL FUMARATE [Suspect]
     Indication: HIV INFECTION
     Dosage: 1 DF, QD
     Route: 048
     Dates: start: 20100713, end: 20111108
  2. CELSENTRI [Concomitant]
     Dosage: 300 mg, QD
     Route: 048
     Dates: start: 20100713, end: 20111108
  3. NORVIR [Concomitant]
     Dosage: 100 mg, QD
     Route: 048
     Dates: start: 20100713, end: 20111108
  4. ISENTRESS [Concomitant]
     Dosage: 800 mg, QD
     Route: 048
     Dates: start: 20100713, end: 20111108
  5. PREZISTA                           /05513801/ [Concomitant]
     Dosage: 800 mg, QD
     Route: 048
     Dates: start: 20100713, end: 20111108

REACTIONS (1)
  - Premature delivery [Recovered/Resolved]
